FAERS Safety Report 5690262-5 (Version None)
Quarter: 2008Q2

REPORT INFORMATION
  Report Type: 
  Country: None (occurrence: None)
  Receive Date: 20080401
  Receipt Date: 20080324
  Transmission Date: 20081010
  Serious: Yes (Hospitalization)
  Sender: FDA-Public Use
  Company Number: US-ASTRAZENECA-2008UW05921

PATIENT
  Age: 1 Year
  Sex: Male

DRUGS (6)
  1. TOPROL-XL [Suspect]
     Route: 048
  2. MORPHINE [Suspect]
     Route: 048
  3. HYDROCODONE WITH APAP [Suspect]
     Route: 048
  4. ANTIHYPERLIPIDEMIC [Suspect]
     Route: 048
  5. BENZODIAZEPINE DERIVATIVE [Suspect]
     Route: 048
  6. TRAZODONE HCL [Suspect]
     Route: 048

REACTIONS (12)
  - ARRHYTHMIA [None]
  - ATRIOVENTRICULAR BLOCK FIRST DEGREE [None]
  - BRADYARRHYTHMIA [None]
  - CONDUCTION DISORDER [None]
  - DELIRIUM [None]
  - DEMENTIA [None]
  - ENCEPHALITIS [None]
  - LETHARGY [None]
  - MEDICATION ERROR [None]
  - MENINGITIS [None]
  - OPIATES [None]
  - SOMNOLENCE [None]
